FAERS Safety Report 21177078 (Version 4)
Quarter: 2022Q4

REPORT INFORMATION
  Report Type: Report from Study
  Country: US (occurrence: US)
  Receive Date: 20220805
  Receipt Date: 20221007
  Transmission Date: 20230113
  Serious: Yes (Other)
  Sender: FDA-Public Use
  Company Number: US-ABBVIE-22K-163-4493760-00

PATIENT
  Sex: Female
  Weight: 117.93 kg

DRUGS (8)
  1. ADALIMUMAB [Suspect]
     Active Substance: ADALIMUMAB
     Indication: Product used for unknown indication
     Route: 058
     Dates: end: 202206
  2. RINVOQ [Suspect]
     Active Substance: UPADACITINIB
     Indication: Psoriatic arthropathy
     Route: 048
     Dates: start: 20220401, end: 20220720
  3. MODERNA COVID-19 VACCINE [Concomitant]
     Active Substance: ELASOMERAN
     Indication: COVID-19 immunisation
     Dosage: TIME INTERVAL: 1 TOTAL: 1ST DOSE
     Route: 030
     Dates: start: 20210401, end: 20210401
  4. MODERNA COVID-19 VACCINE [Concomitant]
     Active Substance: ELASOMERAN
     Indication: COVID-19 immunisation
     Dosage: TIME INTERVAL: 1 TOTAL: 2ND
     Route: 030
     Dates: start: 20211223, end: 20211223
  5. MODERNA COVID-19 VACCINE [Concomitant]
     Active Substance: ELASOMERAN
     Indication: COVID-19 immunisation
     Dosage: TIME INTERVAL: 1 TOTAL: BOOSTER
     Route: 030
  6. Vaginal Yeast Cream [Concomitant]
     Indication: Product used for unknown indication
  7. UNSPECIFIED INGREDIENT [Concomitant]
     Active Substance: UNSPECIFIED INGREDIENT
     Indication: Product used for unknown indication
  8. METFORMIN [Concomitant]
     Active Substance: METFORMIN HYDROCHLORIDE
     Indication: Product used for unknown indication

REACTIONS (10)
  - Exposure to SARS-CoV-2 [Recovering/Resolving]
  - Back pain [Unknown]
  - Taste disorder [Recovered/Resolved]
  - Sacroiliac fusion [Recovering/Resolving]
  - Cartilage injury [Recovered/Resolved with Sequelae]
  - Bursitis [Not Recovered/Not Resolved]
  - Knee arthroplasty [Unknown]
  - Intervertebral disc degeneration [Unknown]
  - Exostosis [Recovered/Resolved with Sequelae]
  - Osteoarthritis [Unknown]

NARRATIVE: CASE EVENT DATE: 20210101
